FAERS Safety Report 6315139-3 (Version None)
Quarter: 2009Q3

REPORT INFORMATION
  Report Type: 
  Country: None (occurrence: None)
  Receive Date: 20090819
  Receipt Date: 20090807
  Transmission Date: 20100115
  Serious: Yes (Other)
  Sender: FDA-Public Use
  Company Number: FR-JNJFOC-20090801556

PATIENT
  Age: 50 Year
  Sex: Female

DRUGS (1)
  1. CAELYX [Suspect]
     Indication: OVARIAN CANCER METASTATIC
     Route: 042

REACTIONS (3)
  - DECREASED APPETITE [None]
  - MOUTH ULCERATION [None]
  - SKIN ULCER [None]
